FAERS Safety Report 19870467 (Version 2)
Quarter: 2021Q4

REPORT INFORMATION
  Report Type: Spontaneous
  Country: US (occurrence: US)
  Receive Date: 20210922
  Receipt Date: 20211028
  Transmission Date: 20220303
  Serious: No
  Sender: FDA-Public Use
  Company Number: US-PFIZER INC-2020393066

PATIENT
  Age: 72 Year
  Sex: Female

DRUGS (1)
  1. DETROL LA [Suspect]
     Active Substance: TOLTERODINE TARTRATE
     Dosage: 4 MG, DAILY
     Route: 048

REACTIONS (2)
  - Gait disturbance [Unknown]
  - Joint injury [Unknown]

NARRATIVE: CASE EVENT DATE: 20200101
